FAERS Safety Report 9894711 (Version 1)
Quarter: 2014Q1

REPORT INFORMATION
  Report Type: Spontaneous
  Country: FR (occurrence: FR)
  Receive Date: 20140213
  Receipt Date: 20140213
  Transmission Date: 20141002
  Serious: Yes (Congenital Anomaly, Other)
  Sender: FDA-Public Use
  Company Number: FR-PFIZER INC-2014035182

PATIENT
  Sex: Male

DRUGS (2)
  1. EFFEXOR [Suspect]
     Dosage: 150 MG, DAILY
     Route: 064
     Dates: start: 20130305
  2. LEXOMIL ROCHE [Suspect]
     Dosage: 0.25 DF, DAILY
     Route: 064
     Dates: start: 20130305

REACTIONS (7)
  - Maternal exposure during pregnancy [Unknown]
  - Polydactyly [Not Recovered/Not Resolved]
  - Foetal growth restriction [Not Recovered/Not Resolved]
  - Hypotonia neonatal [Recovered/Resolved]
  - Neonatal hypoxia [Recovered/Resolved]
  - Hypothermia neonatal [Recovering/Resolving]
  - Foetal cardiac disorder [Unknown]
